FAERS Safety Report 19369487 (Version 1)
Quarter: 2021Q2

REPORT INFORMATION
  Report Type: Spontaneous
  Country: US (occurrence: US)
  Receive Date: 20210602
  Receipt Date: 20210602
  Transmission Date: 20210717
  Serious: No
  Sender: FDA-Public Use
  Company Number: US-ROCHE-2721800

PATIENT
  Sex: Female

DRUGS (1)
  1. OCREVUS [Suspect]
     Active Substance: OCRELIZUMAB
     Indication: MULTIPLE SCLEROSIS
     Dosage: ON 18/MAY/2020, SHE RECEIVED 2ND 300 MG INFUSION OF OCRELIZUMAB.
     Route: 065
     Dates: start: 20200504

REACTIONS (1)
  - B-lymphocyte count abnormal [Unknown]
